FAERS Safety Report 13824720 (Version 1)
Quarter: 2017Q3

REPORT INFORMATION
  Report Type: Spontaneous
  Country: US (occurrence: US)
  Receive Date: 20170802
  Receipt Date: 20170802
  Transmission Date: 20171127
  Serious: Yes (Other)
  Sender: FDA-Public Use
  Company Number: US-EMD SERONO-8162959

PATIENT
  Sex: Male

DRUGS (2)
  1. CLADRIBINE. [Suspect]
     Active Substance: CLADRIBINE
     Indication: PRODUCT USED FOR UNKNOWN INDICATION
     Route: 042
     Dates: end: 2013
  2. REBIF [Suspect]
     Active Substance: INTERFERON BETA-1A
     Indication: PRODUCT USED FOR UNKNOWN INDICATION
     Dates: end: 201601

REACTIONS (5)
  - Metastases to spine [Unknown]
  - White blood cell count decreased [Unknown]
  - Carcinoid tumour of the small bowel [Unknown]
  - Metastases to liver [Not Recovered/Not Resolved]
  - Metastatic carcinoid tumour [Unknown]

NARRATIVE: CASE EVENT DATE: 2013
